FAERS Safety Report 20921721 (Version 2)
Quarter: 2022Q4

REPORT INFORMATION
  Report Type: Report from Study
  Country: JP (occurrence: JP)
  Receive Date: 20220606
  Receipt Date: 20221006
  Transmission Date: 20230112
  Serious: Yes (Death, Other)
  Sender: FDA-Public Use
  Company Number: JP-BRISTOL-MYERS SQUIBB COMPANY-2022-050026

PATIENT
  Age: 71 Year
  Sex: Female
  Weight: 40.2 kg

DRUGS (19)
  1. ISTODAX [Suspect]
     Active Substance: ROMIDEPSIN
     Indication: Angioimmunoblastic T-cell lymphoma
     Route: 065
     Dates: start: 20201203, end: 20201203
  2. ISTODAX [Suspect]
     Active Substance: ROMIDEPSIN
     Route: 065
     Dates: start: 20201210, end: 20201210
  3. ISTODAX [Suspect]
     Active Substance: ROMIDEPSIN
     Route: 065
     Dates: start: 20201217, end: 20201217
  4. ISTODAX [Suspect]
     Active Substance: ROMIDEPSIN
     Route: 065
     Dates: start: 20210107, end: 20210107
  5. ISTODAX [Suspect]
     Active Substance: ROMIDEPSIN
     Route: 065
     Dates: start: 20210114, end: 20210114
  6. ISTODAX [Suspect]
     Active Substance: ROMIDEPSIN
     Route: 065
     Dates: start: 20210121, end: 20210121
  7. ISTODAX [Suspect]
     Active Substance: ROMIDEPSIN
     Route: 065
     Dates: start: 20210204, end: 20210204
  8. ISTODAX [Suspect]
     Active Substance: ROMIDEPSIN
     Route: 065
     Dates: start: 20210218, end: 20210218
  9. ISTODAX [Suspect]
     Active Substance: ROMIDEPSIN
     Route: 065
     Dates: start: 20210225, end: 20210225
  10. ISTODAX [Suspect]
     Active Substance: ROMIDEPSIN
     Route: 065
     Dates: start: 20210311, end: 20210311
  11. ISTODAX [Suspect]
     Active Substance: ROMIDEPSIN
     Route: 065
     Dates: start: 20210318, end: 20210318
  12. ISTODAX [Suspect]
     Active Substance: ROMIDEPSIN
     Route: 065
     Dates: start: 20210325, end: 20210325
  13. ISTODAX [Suspect]
     Active Substance: ROMIDEPSIN
     Route: 065
     Dates: start: 20210415, end: 20210415
  14. ISTODAX [Suspect]
     Active Substance: ROMIDEPSIN
     Route: 065
     Dates: start: 20210422, end: 20210422
  15. ISTODAX [Suspect]
     Active Substance: ROMIDEPSIN
     Route: 065
     Dates: start: 20210603, end: 20210603
  16. ISTODAX [Suspect]
     Active Substance: ROMIDEPSIN
     Route: 065
     Dates: start: 20210610, end: 20210610
  17. ISTODAX [Suspect]
     Active Substance: ROMIDEPSIN
     Route: 065
     Dates: start: 20210617, end: 20210617
  18. ACYCLOVIR [Concomitant]
     Active Substance: ACYCLOVIR
     Indication: Infection prophylaxis
     Route: 048
  19. ACYCLOVIR [Concomitant]
     Active Substance: ACYCLOVIR
     Route: 048

REACTIONS (4)
  - COVID-19 [Fatal]
  - Liver disorder [Recovering/Resolving]
  - Myelosuppression [Recovered/Resolved]
  - Malignant neoplasm progression [Fatal]

NARRATIVE: CASE EVENT DATE: 20201204
